FAERS Safety Report 12772763 (Version 3)
Quarter: 2016Q4

REPORT INFORMATION
  Report Type: Spontaneous
  Country: JP (occurrence: JP)
  Receive Date: 20160922
  Receipt Date: 20161017
  Transmission Date: 20170207
  Serious: Yes (Other)
  Sender: FDA-Public Use
  Company Number: JP-JNJFOC-20160918515

PATIENT
  Age: 67 Year
  Sex: Male

DRUGS (2)
  1. REMICADE [Suspect]
     Active Substance: INFLIXIMAB
     Indication: PSORIASIS
     Dosage: DISCONTINUED ON WEEK 6
     Route: 042
     Dates: start: 201004, end: 2010
  2. CICLOSPORIN [Suspect]
     Active Substance: CYCLOSPORINE
     Indication: PSORIASIS
     Route: 065

REACTIONS (6)
  - Infection [Unknown]
  - Erysipelas [Recovering/Resolving]
  - Bile duct cancer [Unknown]
  - Hepatic enzyme increased [Recovering/Resolving]
  - Laboratory test abnormal [Unknown]
  - Gastric cancer [Unknown]

NARRATIVE: CASE EVENT DATE: 2010
